FAERS Safety Report 6078261-5 (Version None)
Quarter: 2009Q1

REPORT INFORMATION
  Report Type: 
  Country: None (occurrence: None)
  Receive Date: 20090213
  Receipt Date: 20090205
  Transmission Date: 20090719
  Serious: Yes (Hospitalization)
  Sender: FDA-Public Use
  Company Number: NL-PFIZER INC-2009159922

PATIENT

DRUGS (2)
  1. BLINDED *PLACEBO [Suspect]
     Indication: NEURALGIA
     Dosage: UNK
     Route: 048
     Dates: start: 20081106, end: 20081227
  2. BLINDED PREGABALIN [Suspect]
     Indication: NEURALGIA
     Dosage: UNK
     Route: 048
     Dates: start: 20081106, end: 20081227

REACTIONS (2)
  - DYSPEPSIA [None]
  - HYPERCHLORHYDRIA [None]
